FAERS Safety Report 12659973 (Version 2)
Quarter: 2016Q3

REPORT INFORMATION
  Report Type: Spontaneous
  Country: CM (occurrence: CM)
  Receive Date: 20160817
  Receipt Date: 20160822
  Transmission Date: 20161109
  Serious: Yes (Life-Threatening)
  Sender: FDA-Public Use
  Company Number: CM-IMPAX LABORATORIES, INC-2016-IPXL-00905

PATIENT
  Age: 28 Year
  Sex: Female
  Weight: 67 kg

DRUGS (5)
  1. MECTIZAN [Interacting]
     Active Substance: IVERMECTIN
     Indication: ONCHOCERCIASIS
     Dosage: (4 DOSAGE FORM)
     Route: 048
     Dates: start: 20160717
  2. ALBENZA [Interacting]
     Active Substance: ALBENDAZOLE
     Indication: ONCHOCERCIASIS
     Dosage: (1 DOSAGE FORM), UNK
     Route: 048
     Dates: start: 20160717
  3. MECTIZAN [Interacting]
     Active Substance: IVERMECTIN
     Indication: FILARIASIS LYMPHATIC
     Dosage: 4 TABLETS
     Route: 048
     Dates: start: 2013
  4. ALBENZA [Suspect]
     Active Substance: ALBENDAZOLE
     Indication: FILARIASIS LYMPHATIC
     Dosage: 1 TABLET
     Route: 048
     Dates: start: 2013
  5. DICLOFENAC [Concomitant]
     Active Substance: DICLOFENAC
     Indication: PRODUCT USED FOR UNKNOWN INDICATION
     Dosage: UNK
     Route: 065

REACTIONS (6)
  - Off label use [Unknown]
  - Eye pain [Recovered/Resolved]
  - Eye oedema [Recovered/Resolved]
  - Drug interaction [Recovered/Resolved]
  - Ocular hyperaemia [Recovered/Resolved]
  - Nasopharyngitis [Recovered/Resolved]

NARRATIVE: CASE EVENT DATE: 20160720
